FAERS Safety Report 23287177 (Version 1)
Quarter: 2023Q4

REPORT INFORMATION
  Report Type: Spontaneous
  Country: US (occurrence: None)
  Receive Date: 20231210
  Receipt Date: 20231210
  Transmission Date: 20240110
  Serious: Yes (Disabling, Other)
  Sender: FDA-Public Use
  Company Number: None

PATIENT
  Age: 48 Year
  Sex: Female
  Weight: 57.6 kg

DRUGS (15)
  1. CIPRO [Suspect]
     Active Substance: CIPROFLOXACIN HYDROCHLORIDE
     Indication: Sinusitis
     Dates: start: 19980601, end: 20130801
  2. CIPRO [Suspect]
     Active Substance: CIPROFLOXACIN HYDROCHLORIDE
     Indication: Respiratory tract infection
  3. LEVAQUIN [Suspect]
     Active Substance: LEVOFLOXACIN
     Indication: Sinusitis
     Dates: start: 19980601, end: 20130801
  4. LEVAQUIN [Suspect]
     Active Substance: LEVOFLOXACIN
     Indication: Respiratory tract infection
  5. AVELOX [Suspect]
     Active Substance: MOXIFLOXACIN HYDROCHLORIDE
     Indication: Sinusitis
     Dates: start: 19980601, end: 20130801
  6. AVELOX [Suspect]
     Active Substance: MOXIFLOXACIN HYDROCHLORIDE
     Indication: Respiratory tract infection
  7. HYDROCODONE [Concomitant]
     Active Substance: HYDROCODONE
  8. ZOLPIDEM [Concomitant]
     Active Substance: ZOLPIDEM TARTRATE
  9. TRAMADOL [Concomitant]
     Active Substance: TRAMADOL\TRAMADOL HYDROCHLORIDE
  10. GABAPENTIN [Concomitant]
     Active Substance: GABAPENTIN
  11. MAGNESIUM [Concomitant]
     Active Substance: MAGNESIUM
  12. VITAMIN D3 [Concomitant]
     Active Substance: CHOLECALCIFEROL
  13. VITAMIN B12 [Concomitant]
     Active Substance: CYANOCOBALAMIN
  14. COENZYME Q10 [Concomitant]
     Active Substance: DIETARY SUPPLEMENT\UBIDECARENONE
  15. FOLATE SODIUM [Concomitant]
     Active Substance: FOLATE SODIUM

REACTIONS (13)
  - Tendon disorder [None]
  - Tendon injury [None]
  - Fibromyalgia [None]
  - Insomnia [None]
  - Tachyphrenia [None]
  - Ligament rupture [None]
  - Bedridden [None]
  - Alopecia [None]
  - Urticaria [None]
  - Respiratory tract infection [None]
  - Muscle atrophy [None]
  - Pneumothorax [None]
  - Asthenia [None]

NARRATIVE: CASE EVENT DATE: 20041220
